FAERS Safety Report 4723808-1 (Version None)
Quarter: 2005Q3

REPORT INFORMATION
  Report Type: 
  Country: None (occurrence: None)
  Receive Date: 20050721
  Receipt Date: 20050712
  Transmission Date: 20060218
  Serious: Yes (Hospitalization)
  Sender: FDA-Public Use
  Company Number: E2003-00319

PATIENT
  Age: 22 Year
  Sex: Male

DRUGS (2)
  1. RABIES IMOVAX (RABIES (HDC) VACCINE - F),AVENTIS PASTEUR SA,W0391-6,D3 [Suspect]
     Indication: ACCIDENTAL EXPOSURE
     Dates: start: 20030303, end: 20030310
  2. PASTEURIZED HUMAN RABIES IMMUNOGLOBULIN, AVENTIS PASTEUR SA, W0009-3 [Suspect]
     Indication: ACCIDENTAL EXPOSURE
     Dates: start: 20030303

REACTIONS (11)
  - COUGH [None]
  - HYPERHIDROSIS [None]
  - PALLOR [None]
  - PHARYNGEAL OEDEMA [None]
  - PYREXIA [None]
  - RASH [None]
  - RHINORRHOEA [None]
  - SWELLING [None]
  - TACHYCARDIA [None]
  - URTICARIA [None]
  - VIRAL INFECTION [None]
